FAERS Safety Report 9282654 (Version 2)
Quarter: 2013Q2

REPORT INFORMATION
  Report Type: Spontaneous
  Country: US (occurrence: None)
  Receive Date: 20110125
  Receipt Date: 20130419
  Transmission Date: 20140414
  Serious: Yes (Life-Threatening)
  Sender: FDA-Public Use
  Company Number: 54973 SAE018

PATIENT
  Age: 4 Month
  Sex: Female
  Weight: 8.16 kg

DRUGS (1)
  1. HYLAND^S TEETHING GEL [Suspect]
     Indication: TEETHING
     Dosage: 1  DOSE  EVRY  4HRS  X  3DYS

REACTIONS (3)
  - Urine output decreased [None]
  - Decreased appetite [None]
  - Hypersomnia [None]
